FAERS Safety Report 8522704-1 (Version None)
Quarter: 2012Q3

REPORT INFORMATION
  Report Type: 
  Country: None (occurrence: None)
  Receive Date: 20120719
  Receipt Date: 20120709
  Transmission Date: 20120928
  Serious: Yes (Hospitalization)
  Sender: FDA-Public Use
  Company Number: FR-GLAXOSMITHKLINE-B0696477A

PATIENT
  Sex: Female

DRUGS (2)
  1. ZOFRAN [Suspect]
     Indication: PRODUCT USED FOR UNKNOWN INDICATION
     Dosage: 8MG TWICE PER DAY
     Route: 048
     Dates: start: 20101220, end: 20101223
  2. FOTEMUSTINE [Suspect]
     Indication: MALIGNANT MELANOMA
     Route: 042
     Dates: start: 20101220, end: 20101220

REACTIONS (3)
  - TOXIC SKIN ERUPTION [None]
  - RASH PAPULAR [None]
  - RASH MACULAR [None]
